FAERS Safety Report 10896283 (Version 1)
Quarter: 2015Q1

REPORT INFORMATION
  Report Type: Report from Study
  Country: CO (occurrence: CO)
  Receive Date: 20150309
  Receipt Date: 20150309
  Transmission Date: 20150721
  Serious: Yes (Death, Hospitalization)
  Sender: FDA-Public Use
  Company Number: CO-BRISTOL-MYERS SQUIBB COMPANY-BMS-2014-007524

PATIENT
  Sex: Female

DRUGS (1)
  1. CETUXIMAB [Suspect]
     Active Substance: CETUXIMAB
     Indication: HEAD AND NECK CANCER
     Dosage: 500 UNK, UNK
     Route: 042
     Dates: start: 20140613

REACTIONS (6)
  - Completed suicide [Fatal]
  - Abdominal discomfort [Unknown]
  - General physical health deterioration [Unknown]
  - Eating disorder [Unknown]
  - Malaise [Unknown]
  - Oedema mouth [Unknown]

NARRATIVE: CASE EVENT DATE: 20141031
